FAERS Safety Report 7512307-X (Version None)
Quarter: 2011Q2

REPORT INFORMATION
  Report Type: 
  Country: None (occurrence: None)
  Receive Date: 20110531
  Receipt Date: 20110518
  Transmission Date: 20111010
  Serious: Yes (Death, Other)
  Sender: FDA-Public Use
  Company Number: JP-ACTELION-A-CH2011-48899

PATIENT
  Sex: Male

DRUGS (15)
  1. BERAPROST SODIUM [Concomitant]
  2. SILDENAFIL CITRATE [Concomitant]
  3. TRACLEER [Suspect]
     Indication: PULMONARY ARTERIAL HYPERTENSION
     Dosage: 62.5 MG, BID
     Route: 048
     Dates: start: 20110310, end: 20110424
  4. OXYGEN [Concomitant]
  5. UBIDECARENONE [Concomitant]
  6. BROTIZOLAM [Concomitant]
  7. WARFARIN SODIUM [Concomitant]
  8. ZOLPIDEM TARTRATE [Concomitant]
  9. DIGOXIN [Suspect]
     Indication: SINUS TACHYCARDIA
     Dosage: UNK
     Dates: start: 20110415, end: 20110424
  10. FUROSEMIDE [Concomitant]
  11. TEPRENONE [Concomitant]
  12. LANSOPRAZOLE [Concomitant]
  13. ETIZOLAM [Concomitant]
  14. VERAPAMIL HCL [Suspect]
     Indication: PALPITATIONS
     Dosage: UNK
     Dates: start: 20110417, end: 20110417
  15. ETODOLAC [Concomitant]

REACTIONS (6)
  - OXYGEN SATURATION DECREASED [None]
  - BLOOD PRESSURE DECREASED [None]
  - LOSS OF CONSCIOUSNESS [None]
  - ARRHYTHMIA [None]
  - PALPITATIONS [None]
  - MALAISE [None]
